FAERS Safety Report 19394492 (Version 1)
Quarter: 2021Q2

REPORT INFORMATION
  Report Type: Spontaneous
  Country: US (occurrence: US)
  Receive Date: 20210609
  Receipt Date: 20210609
  Transmission Date: 20210717
  Serious: No
  Sender: FDA-Public Use
  Company Number: None

PATIENT
  Age: 39 Year
  Sex: Female

DRUGS (1)
  1. GLATIRAMER PFS 40MG/ML [Suspect]
     Active Substance: GLATIRAMER ACETATE
     Dosage: OTHER
     Route: 058
     Dates: start: 201811

REACTIONS (6)
  - Swelling face [None]
  - Rash [None]
  - Pruritus [None]
  - Cough [None]
  - Dyspnoea [None]
  - Ear swelling [None]

NARRATIVE: CASE EVENT DATE: 20210607
